FAERS Safety Report 14341639 (Version 1)
Quarter: 2018Q1

REPORT INFORMATION
  Report Type: Spontaneous
  Country: US (occurrence: US)
  Receive Date: 20180102
  Receipt Date: 20180102
  Transmission Date: 20180509
  Serious: Yes (Other)
  Sender: FDA-Public Use
  Company Number: US-TEVA-789837USA

PATIENT
  Sex: Female

DRUGS (8)
  1. SIMVASTATIN. [Concomitant]
     Active Substance: SIMVASTATIN
  2. OXYCONTIN [Concomitant]
     Active Substance: OXYCODONE HYDROCHLORIDE
  3. CLONIDINE. [Suspect]
     Active Substance: CLONIDINE
     Route: 062
  4. BABY ASPIRIN [Concomitant]
     Active Substance: ASPIRIN
     Dosage: 81 MILLIGRAM DAILY;
  5. NIFEDIPINE. [Concomitant]
     Active Substance: NIFEDIPINE
  6. CLONIDINE. [Suspect]
     Active Substance: CLONIDINE
     Dosage: AS NEEDED
     Route: 048
  7. ENALAPRIL [Concomitant]
     Active Substance: ENALAPRIL
  8. ENALAPRIL [Concomitant]
     Active Substance: ENALAPRIL

REACTIONS (3)
  - Heart rate decreased [Unknown]
  - Hypertension [Unknown]
  - Incorrect drug administration rate [Unknown]
